FAERS Safety Report 14552577 (Version 1)
Quarter: 2018Q1

REPORT INFORMATION
  Report Type: Spontaneous
  Country: US (occurrence: US)
  Receive Date: 20180216
  Receipt Date: 20180216
  Transmission Date: 20180509
  Serious: No
  Sender: FDA-Public Use
  Company Number: None

PATIENT
  Age: 76 Year
  Sex: Male

DRUGS (11)
  1. GABAPENTIN. [Concomitant]
     Active Substance: GABAPENTIN
  2. ASPIRIN. [Concomitant]
     Active Substance: ASPIRIN
  3. ONDANSETRON HCI [Concomitant]
  4. LOMOTIL [Concomitant]
     Active Substance: ATROPINE SULFATE\DIPHENOXYLATE HYDROCHLORIDE
  5. PROMETHAZINE HCI [Concomitant]
  6. LISINOPRIL. [Concomitant]
     Active Substance: LISINOPRIL
  7. METOPROLOL SUCCINATE. [Concomitant]
     Active Substance: METOPROLOL SUCCINATE
  8. HYDROCHLOROTHIAZIDE. [Concomitant]
     Active Substance: HYDROCHLOROTHIAZIDE
  9. ROSUVASTATIN CALCIUM. [Concomitant]
     Active Substance: ROSUVASTATIN CALCIUM
  10. LONSURF [Suspect]
     Active Substance: TIPIRACIL HYDROCHLORIDE\TRIFLURIDINE
     Indication: NEOPLASM MALIGNANT
     Route: 048
     Dates: start: 20180125
  11. AMOLDIPINE BESYLATE [Concomitant]

REACTIONS (1)
  - Fatigue [None]

NARRATIVE: CASE EVENT DATE: 20180130
